FAERS Safety Report 9587026 (Version 1)
Quarter: 2013Q4

REPORT INFORMATION
  Report Type: Spontaneous
  Country: FR (occurrence: FR)
  Receive Date: 20131003
  Receipt Date: 20131003
  Transmission Date: 20140711
  Serious: Yes (Life-Threatening)
  Sender: FDA-Public Use
  Company Number: FR-PFIZER INC-2013281718

PATIENT
  Age: 73 Year
  Sex: Male

DRUGS (11)
  1. CORDARONE [Suspect]
     Dosage: UNK
     Route: 048
  2. ALDACTONE [Suspect]
     Dosage: UNK
     Route: 048
     Dates: end: 201307
  3. TRIATEC [Suspect]
     Dosage: UNK
     Route: 048
     Dates: end: 201307
  4. XARELTO [Suspect]
     Dosage: UNK
     Route: 048
     Dates: end: 20130702
  5. XARELTO [Suspect]
     Dosage: UNK
     Route: 048
  6. KARDEGIC [Suspect]
     Dosage: UNK
     Route: 048
     Dates: end: 20130702
  7. CARDENSIEL [Suspect]
     Dosage: UNK
     Route: 048
  8. LASILIX [Suspect]
     Dosage: UNK
     Route: 048
     Dates: end: 201307
  9. CRESTOR [Suspect]
     Dosage: UNK
     Route: 048
  10. KALEORID [Suspect]
     Dosage: UNK
     Route: 048
     Dates: end: 201307
  11. SODIUM CHLORIDE [Suspect]
     Dosage: UNK

REACTIONS (5)
  - Haematemesis [Recovered/Resolved with Sequelae]
  - Hypovolaemic shock [Recovered/Resolved]
  - Chest pain [Recovered/Resolved]
  - Renal failure acute [Recovered/Resolved]
  - Gastric ulcer [Recovered/Resolved with Sequelae]
